FAERS Safety Report 18580129 (Version 1)
Quarter: 2020Q4

REPORT INFORMATION
  Report Type: Spontaneous
  Country: DE (occurrence: DE)
  Receive Date: 20201204
  Receipt Date: 20201204
  Transmission Date: 20210114
  Serious: Yes (Other)
  Sender: FDA-Public Use
  Company Number: DE-ASTRAZENECA-2020SF57473

PATIENT
  Age: 56 Year
  Sex: Male

DRUGS (1)
  1. DURVALUMAB. [Suspect]
     Active Substance: DURVALUMAB
     Indication: NON-SMALL CELL LUNG CANCER
     Route: 042

REACTIONS (6)
  - Lung disorder [Unknown]
  - Pulmonary fibrosis [Unknown]
  - Lung infiltration [Unknown]
  - Bronchopulmonary disease [Unknown]
  - Pneumonia [Unknown]
  - Liver function test increased [Unknown]

NARRATIVE: CASE EVENT DATE: 201910
